FAERS Safety Report 4323684-5 (Version None)
Quarter: 2004Q1

REPORT INFORMATION
  Report Type: 
  Country: None (occurrence: None)
  Receive Date: 20040323
  Receipt Date: 20040318
  Transmission Date: 20041129
  Serious: Yes (Life-Threatening, Hospitalization)
  Sender: FDA-Public Use
  Company Number: 04-00133

PATIENT
  Age: 15 Year
  Sex: Female

DRUGS (1)
  1. KADIAN [Suspect]
     Dosage: 360 MG TOTAL

REACTIONS (4)
  - ACUTE RESPIRATORY FAILURE [None]
  - COMA [None]
  - DRUG TOXICITY [None]
  - SUICIDE ATTEMPT [None]
